FAERS Safety Report 10081486 (Version 1)
Quarter: 2014Q2

REPORT INFORMATION
  Report Type: Spontaneous
  Country: BR (occurrence: BR)
  Receive Date: 20140416
  Receipt Date: 20140416
  Transmission Date: 20141212
  Serious: Yes (Hospitalization)
  Sender: FDA-Public Use
  Company Number: BR-ASTRAZENECA-2014SE24875

PATIENT
  Age: 60 Year
  Sex: Male
  Weight: 75 kg

DRUGS (4)
  1. BRILINTA [Suspect]
     Indication: CARDIOVASCULAR EVENT PROPHYLAXIS
     Route: 048
     Dates: start: 201306
  2. SUSTRATE [Concomitant]
     Route: 048
     Dates: start: 201306
  3. ZOCOR [Concomitant]
     Route: 048
     Dates: start: 201306
  4. ASPIRINA [Concomitant]
     Route: 048
     Dates: start: 201306

REACTIONS (1)
  - Coronary artery occlusion [Recovered/Resolved]
